FAERS Safety Report 7642491-9 (Version None)
Quarter: 2011Q3

REPORT INFORMATION
  Report Type: 
  Country: None (occurrence: None)
  Receive Date: 20110728
  Receipt Date: 20110719
  Transmission Date: 20111222
  Serious: Yes (Disabling)
  Sender: FDA-Public Use
  Company Number: US-ABBOTT-11P-163-0733583-00

PATIENT
  Sex: Female
  Weight: 73.548 kg

DRUGS (1)
  1. HUMIRA [Suspect]
     Indication: PSORIASIS
     Dates: end: 20110401

REACTIONS (12)
  - COUGH [None]
  - DRUG DOSE OMISSION [None]
  - PHARYNGEAL INFLAMMATION [None]
  - OCCUPATIONAL EXPOSURE TO NOISE [None]
  - NERVE INJURY [None]
  - BRONCHITIS VIRAL [None]
  - DYSPNOEA [None]
  - CYSTITIS [None]
  - ILL-DEFINED DISORDER [None]
  - INAPPROPRIATE SCHEDULE OF DRUG ADMINISTRATION [None]
  - SUDDEN HEARING LOSS [None]
  - BRONCHITIS [None]
